FAERS Safety Report 15251398 (Version 1)
Quarter: 2018Q3

REPORT INFORMATION
  Report Type: Spontaneous
  Country: GR (occurrence: GR)
  Receive Date: 20180807
  Receipt Date: 20180807
  Transmission Date: 20181010
  Serious: Yes (Hospitalization)
  Sender: FDA-Public Use
  Company Number: GR-MYLANLABS-2018M1059256

PATIENT
  Age: 14 Year
  Sex: Male

DRUGS (3)
  1. VALSARTAN MYLAN [Suspect]
     Active Substance: VALSARTAN
     Indication: NEPHRITIS
     Dosage: UNK
  2. RAMIPRIL. [Suspect]
     Active Substance: RAMIPRIL
     Indication: PRODUCT USED FOR UNKNOWN INDICATION
     Dosage: UNK
  3. PREDNISOLONE. [Suspect]
     Active Substance: PREDNISOLONE
     Indication: PRODUCT USED FOR UNKNOWN INDICATION
     Dosage: 2 MG/KG, QD

REACTIONS (2)
  - No adverse event [Unknown]
  - Drug ineffective [Unknown]
